FAERS Safety Report 24039667 (Version 1)
Quarter: 2024Q3

REPORT INFORMATION
  Report Type: Spontaneous
  Country: JP (occurrence: JP)
  Receive Date: 20240702
  Receipt Date: 20240702
  Transmission Date: 20241017
  Serious: Yes (Hospitalization)
  Sender: AMGEN
  Company Number: JP-AMGEN-JPNSP2024128627

PATIENT
  Age: 14 Year
  Sex: Female
  Weight: 46.9 kg

DRUGS (14)
  1. BLINATUMOMAB [Suspect]
     Active Substance: BLINATUMOMAB
     Indication: B-cell type acute leukaemia
     Dosage: 9 MICROGRAM, QD (ON DAYS 1-7)
     Route: 042
  2. BLINATUMOMAB [Suspect]
     Active Substance: BLINATUMOMAB
     Dosage: 28 MICROGRAM, QD (ON DAYS 8-28)
     Route: 042
  3. BLINATUMOMAB [Suspect]
     Active Substance: BLINATUMOMAB
     Dosage: 28 MICROGRAM, QD (FOR ALL 28 DAYS)
     Route: 042
  4. DASATINIB [Concomitant]
     Active Substance: DASATINIB
     Indication: B-cell type acute leukaemia
     Route: 065
  5. CYCLOPHOSPHAMIDE\DEXAMETHASONE\DOXORUBICIN\VINCRISTINE [Concomitant]
     Active Substance: CYCLOPHOSPHAMIDE\DEXAMETHASONE\DOXORUBICIN\VINCRISTINE
     Indication: B-cell type acute leukaemia
     Route: 065
  6. METHOTREXATE [Concomitant]
     Active Substance: METHOTREXATE
     Indication: B-cell type acute leukaemia
     Dosage: UNK (ON DAYS 7, 14, 21, AND 30)
     Route: 029
  7. METHOTREXATE [Concomitant]
     Active Substance: METHOTREXATE
     Dosage: UNK (ON DAYS 1, 15, AND 30)
     Route: 029
  8. CYTARABINE [Concomitant]
     Active Substance: CYTARABINE
     Indication: B-cell type acute leukaemia
     Dosage: UNK (ON DAYS 7, 14, 21, AND 30)
     Route: 029
  9. CYTARABINE [Concomitant]
     Active Substance: CYTARABINE
     Dosage: UNK (ON DAYS 1, 15, AND 30)
     Route: 029
  10. PREDNISOLONE [Concomitant]
     Active Substance: PREDNISOLONE
     Indication: B-cell type acute leukaemia
     Dosage: UNK (ON DAYS 7, 14, 21, AND 30)
     Route: 029
  11. PREDNISOLONE [Concomitant]
     Active Substance: PREDNISOLONE
     Dosage: UNK (ON DAYS 1, 15, AND 30)
     Route: 029
  12. MORPHINE [Concomitant]
     Active Substance: MORPHINE
  13. DEXAMETHASONE [Concomitant]
     Active Substance: DEXAMETHASONE
  14. LEVETIRACETAM [Concomitant]
     Active Substance: LEVETIRACETAM

REACTIONS (2)
  - Central nervous system leukaemia [Unknown]
  - Acute lymphocytic leukaemia recurrent [Unknown]
